FAERS Safety Report 8251129-1 (Version None)
Quarter: 2012Q2

REPORT INFORMATION
  Report Type: 
  Country: None (occurrence: None)
  Receive Date: 20120402
  Receipt Date: 20120326
  Transmission Date: 20120825
  Serious: Yes (Hospitalization, Other)
  Sender: FDA-Public Use
  Company Number: FR-ABBOTT-12P-056-0918593-00

PATIENT
  Sex: Male
  Weight: 63 kg

DRUGS (18)
  1. BLEOMYCIN SULFATE [Suspect]
     Indication: PRODUCT USED FOR UNKNOWN INDICATION
     Route: 042
     Dates: start: 20120206, end: 20120206
  2. VALACYCLOVIR HYDROCHLORIDE [Concomitant]
     Indication: PRODUCT USED FOR UNKNOWN INDICATION
  3. DEBRIDAT [Concomitant]
     Indication: PRODUCT USED FOR UNKNOWN INDICATION
  4. PREZISTA [Suspect]
     Indication: HIV INFECTION
     Route: 048
     Dates: end: 20120201
  5. DACARBAZINE [Suspect]
     Indication: PRODUCT USED FOR UNKNOWN INDICATION
  6. ISENTRESS [Concomitant]
     Indication: PRODUCT USED FOR UNKNOWN INDICATION
  7. CREON [Concomitant]
     Indication: PRODUCT USED FOR UNKNOWN INDICATION
  8. ACETAMINOPHEN AND TRAMADOL HCL [Concomitant]
     Indication: PRODUCT USED FOR UNKNOWN INDICATION
     Dosage: 37.5/325 MG
  9. BACTRIM [Concomitant]
     Indication: PRODUCT USED FOR UNKNOWN INDICATION
  10. SPASFON [Concomitant]
     Indication: PRODUCT USED FOR UNKNOWN INDICATION
  11. VINBLASTINE SULFATE [Suspect]
     Indication: PRODUCT USED FOR UNKNOWN INDICATION
     Route: 042
     Dates: start: 20120206, end: 20120206
  12. DOXORUBICIN HCL [Suspect]
     Indication: PRODUCT USED FOR UNKNOWN INDICATION
     Dates: start: 20120206, end: 20120206
  13. DUSPATALIN [Concomitant]
     Indication: PRODUCT USED FOR UNKNOWN INDICATION
  14. INTELENCE [Concomitant]
     Indication: PRODUCT USED FOR UNKNOWN INDICATION
  15. MORPHINE SULFATE [Concomitant]
     Indication: PRODUCT USED FOR UNKNOWN INDICATION
  16. ZOFRAN [Concomitant]
     Indication: PRODUCT USED FOR UNKNOWN INDICATION
  17. MOTILIUM [Concomitant]
     Indication: PRODUCT USED FOR UNKNOWN INDICATION
  18. NORVIR [Suspect]
     Indication: HIV INFECTION
     Route: 048
     Dates: end: 20120201

REACTIONS (15)
  - ABDOMINAL PAIN [None]
  - NAUSEA [None]
  - PRURITUS [None]
  - AGRANULOCYTOSIS [None]
  - IMMUNOLOGY TEST [None]
  - WEIGHT DECREASED [None]
  - COLONIC OBSTRUCTION [None]
  - LYMPHADENITIS VIRAL [None]
  - COLONIC STENOSIS [None]
  - GENERAL PHYSICAL CONDITION ABNORMAL [None]
  - EPSTEIN-BARR VIRUS ASSOCIATED LYMPHOMA [None]
  - NIGHT SWEATS [None]
  - CONSTIPATION [None]
  - UNEVALUABLE EVENT [None]
  - LYMPHADENOPATHY [None]
